FAERS Safety Report 4897940-6 (Version None)
Quarter: 2006Q1

REPORT INFORMATION
  Report Type: 
  Country: None (occurrence: None)
  Receive Date: 20060130
  Receipt Date: 20060117
  Transmission Date: 20060701
  Serious: Yes (Hospitalization)
  Sender: FDA-Public Use
  Company Number: B0407688A

PATIENT
  Age: 42 Year
  Sex: Female

DRUGS (5)
  1. LITHIUM CARBONATE [Suspect]
     Dosage: UNKNOWN
     Route: 065
  2. ZOLPIDEM [Concomitant]
  3. CHLORMETHIAZOLE EDISYLATE [Concomitant]
  4. NADOLOL [Concomitant]
  5. SPIRONOLACTONE [Concomitant]

REACTIONS (20)
  - ABASIA [None]
  - ALCOHOL INDUCED PERSISTING DEMENTIA [None]
  - ASTERIXIS [None]
  - ASTHENIA [None]
  - CONFUSIONAL STATE [None]
  - COORDINATION ABNORMAL [None]
  - DEPRESSED LEVEL OF CONSCIOUSNESS [None]
  - DIAPHRAGMATIC DISORDER [None]
  - DISINHIBITION [None]
  - DISORIENTATION [None]
  - DISTURBANCE IN ATTENTION [None]
  - HAEMODIALYSIS [None]
  - HICCUPS [None]
  - HYPOTONIA [None]
  - MENTAL IMPAIRMENT [None]
  - MUSCLE CONTRACTIONS INVOLUNTARY [None]
  - MYOCLONUS [None]
  - NERVOUS SYSTEM DISORDER [None]
  - SPEECH DISORDER [None]
  - THERAPEUTIC AGENT TOXICITY [None]
